FAERS Safety Report 25935921 (Version 1)
Quarter: 2025Q4

REPORT INFORMATION
  Report Type: Spontaneous
  Country: US (occurrence: None)
  Receive Date: 20251017
  Receipt Date: 20251017
  Transmission Date: 20260118
  Serious: Yes (Other)
  Sender: FDA-CTU
  Company Number: None

PATIENT
  Age: 72 Year
  Sex: Male
  Weight: 77.2 kg

DRUGS (12)
  1. REPATHA [Suspect]
     Active Substance: EVOLOCUMAB
     Indication: Hypercholesterolaemia
     Dosage: OTHER FREQUENCY : EVERY TWO WEEKS;?
     Route: 058
     Dates: start: 20240827
  2. HERBALS\SAW PALMETTO [Concomitant]
     Active Substance: HERBALS\SAW PALMETTO
  3. ELIQUIS [Concomitant]
     Active Substance: APIXABAN
  4. VARENICLINE [Concomitant]
     Active Substance: VARENICLINE
  5. DUTASTERIDE [Concomitant]
     Active Substance: DUTASTERIDE
  6. NITRO-TIME [Concomitant]
     Active Substance: NITROGLYCERIN
  7. LOSARTAN [Concomitant]
     Active Substance: LOSARTAN
  8. Mettormin [Concomitant]
  9. METOPROLOL [Concomitant]
     Active Substance: METOPROLOL
  10. SPIRONOLACTONE [Concomitant]
     Active Substance: SPIRONOLACTONE
  11. TAMSULOSIN [Concomitant]
     Active Substance: TAMSULOSIN
  12. TEMAZEPAM [Concomitant]
     Active Substance: TEMAZEPAM

REACTIONS (2)
  - Renal neoplasm [None]
  - Bladder neoplasm [None]

NARRATIVE: CASE EVENT DATE: 20250930
